FAERS Safety Report 8151253-8 (Version None)
Quarter: 2012Q1

REPORT INFORMATION
  Report Type: 
  Country: None (occurrence: None)
  Receive Date: 20120220
  Receipt Date: 20120210
  Transmission Date: 20120608
  Serious: Yes (Hospitalization, Other)
  Sender: FDA-Public Use
  Company Number: SG-ABBOTT-11P-141-0881574-00

PATIENT
  Age: 46 Year
  Sex: Female
  Weight: 44 kg

DRUGS (5)
  1. VALPROIC ACID [Suspect]
     Route: 048
     Dates: start: 20110901
  2. VALPROIC ACID [Suspect]
     Indication: EPILEPSY
     Route: 048
     Dates: start: 20050101
  3. FOLIC ACID [Concomitant]
     Indication: PRODUCT USED FOR UNKNOWN INDICATION
  4. VALPROIC ACID [Suspect]
     Route: 048
     Dates: end: 20110901
  5. CALCIUM/VITAMIN D [Concomitant]
     Indication: PRODUCT USED FOR UNKNOWN INDICATION
     Dosage: 450 MG/200 IU

REACTIONS (2)
  - DENGUE FEVER [None]
  - THROMBOCYTOPENIA [None]
